FAERS Safety Report 9961526 (Version 1)
Quarter: 2014Q1

REPORT INFORMATION
  Report Type: Spontaneous
  Country: GB (occurrence: GB)
  Receive Date: 20140305
  Receipt Date: 20140305
  Transmission Date: 20141002
  Serious: Yes (Other)
  Sender: FDA-Public Use
  Company Number: GB-PFIZER INC-2014058060

PATIENT
  Age: 46 Year
  Sex: Male
  Weight: 104.77 kg

DRUGS (5)
  1. CHAMPIX [Suspect]
     Indication: SMOKING CESSATION THERAPY
     Dosage: 0.5MG/1MG
     Route: 048
     Dates: start: 20120708, end: 20120819
  2. ATORVASTATIN [Concomitant]
     Dosage: UNK
  3. FELODIPINE [Concomitant]
     Dosage: UNK
  4. LISINOPRIL [Concomitant]
     Dosage: UNK
  5. VICTOZA [Concomitant]

REACTIONS (3)
  - Mood altered [Not Recovered/Not Resolved]
  - Decreased interest [Unknown]
  - Weight increased [Unknown]
